FAERS Safety Report 10500925 (Version 2)
Quarter: 2014Q4

REPORT INFORMATION
  Report Type: Spontaneous
  Country: JP (occurrence: JP)
  Receive Date: 20141007
  Receipt Date: 20141231
  Transmission Date: 20150528
  Serious: Yes (Other)
  Sender: FDA-Public Use
  Company Number: JP-AMGEN-JPNSP2014076282

PATIENT
  Age: 68 Year
  Sex: Female

DRUGS (1)
  1. PRALIA [Suspect]
     Active Substance: DENOSUMAB
     Indication: PRODUCT USED FOR UNKNOWN INDICATION
     Dosage: 60 MG, UNK
     Route: 065
     Dates: start: 20131021

REACTIONS (1)
  - Osteonecrosis of jaw [Recovering/Resolving]
